FAERS Safety Report 25563996 (Version 3)
Quarter: 2025Q3

REPORT INFORMATION
  Report Type: Report from Study
  Country: US (occurrence: US)
  Receive Date: 20250716
  Receipt Date: 20250905
  Transmission Date: 20251021
  Serious: Yes (Other)
  Sender: UCB
  Company Number: US-UCBSA-2025043143

PATIENT
  Age: 44 Year
  Sex: Female

DRUGS (3)
  1. BRIVARACETAM [Suspect]
     Active Substance: BRIVARACETAM
     Indication: Epilepsy
     Route: 048
     Dates: start: 2022
  2. BRIVARACETAM [Suspect]
     Active Substance: BRIVARACETAM
     Route: 048
     Dates: start: 20250714
  3. BRIVARACETAM [Suspect]
     Active Substance: BRIVARACETAM
     Route: 048

REACTIONS (4)
  - Seizure [Recovered/Resolved]
  - Overdose [Unknown]
  - Product use issue [Unknown]
  - Product availability issue [Unknown]

NARRATIVE: CASE EVENT DATE: 20250701
